FAERS Safety Report 7394187-9 (Version None)
Quarter: 2011Q2

REPORT INFORMATION
  Report Type: 
  Country: None (occurrence: None)
  Receive Date: 20110405
  Receipt Date: 20110324
  Transmission Date: 20111010
  Serious: Yes (Hospitalization)
  Sender: FDA-Public Use
  Company Number: BR-ELI_LILLY_AND_COMPANY-BR201103004678

PATIENT
  Sex: Female
  Weight: 70 kg

DRUGS (2)
  1. FORTEO [Suspect]
     Dosage: UNK, UNKNOWN
     Route: 065
  2. FORTEO [Suspect]
     Dosage: UNK, UNKNOWN
     Route: 065
     Dates: start: 20100601, end: 20101229

REACTIONS (3)
  - CEREBROVASCULAR ACCIDENT [None]
  - MONOPLEGIA [None]
  - HYPERTENSION [None]
